FAERS Safety Report 5384593-6 (Version None)
Quarter: 2007Q3

REPORT INFORMATION
  Report Type: 
  Country: None (occurrence: None)
  Receive Date: 20070711
  Receipt Date: 20070703
  Transmission Date: 20080115
  Serious: Yes (Other)
  Sender: FDA-Public Use
  Company Number: CA-SHR-CA-2007-024765

PATIENT
  Age: 40 Year
  Sex: Female
  Weight: 53 kg

DRUGS (1)
  1. BETASERON [Suspect]
     Indication: SECONDARY PROGRESSIVE MULTIPLE SCLEROSIS
     Dosage: 8 MIU, EVERY 2D
     Route: 058
     Dates: start: 20040119, end: 20040602

REACTIONS (3)
  - ASTHENIA [None]
  - CONVULSION [None]
  - TREMOR [None]
